FAERS Safety Report 5317201-0 (Version None)
Quarter: 2007Q2

REPORT INFORMATION
  Report Type: 
  Country: None (occurrence: None)
  Receive Date: 20070504
  Receipt Date: 20070424
  Transmission Date: 20071010
  Serious: Yes (Other)
  Sender: FDA-Public Use
  Company Number: US-PFIZER INC-2007034154

PATIENT
  Sex: Male
  Weight: 100 kg

DRUGS (3)
  1. LYRICA [Suspect]
     Indication: HERPES ZOSTER
  2. HYDREA [Interacting]
     Indication: ESSENTIAL THROMBOCYTHAEMIA
  3. OXYCODONE HCL [Interacting]
     Indication: PAIN

REACTIONS (7)
  - ASTHENIA [None]
  - DRUG INTERACTION [None]
  - DYSPNOEA [None]
  - FEELING ABNORMAL [None]
  - HERPES ZOSTER [None]
  - LETHARGY [None]
  - PAIN [None]
